FAERS Safety Report 9094902 (Version 1)
Quarter: 2013Q1

REPORT INFORMATION
  Report Type: Spontaneous
  Country: US (occurrence: None)
  Receive Date: 20130214
  Receipt Date: 20130214
  Transmission Date: 20140127
  Serious: Yes (Hospitalization)
  Sender: FDA-Public Use
  Company Number: None

PATIENT
  Age: 85 Year
  Sex: 0

DRUGS (1)
  1. ZELBORAF 240MG [Suspect]
     Indication: MALIGNANT MELANOMA
     Route: 048
     Dates: start: 20120407, end: 20130208

REACTIONS (1)
  - Squamous cell carcinoma of skin [None]
